FAERS Safety Report 9127774 (Version 1)
Quarter: 2013Q1

REPORT INFORMATION
  Report Type: Spontaneous
  Country: US (occurrence: US)
  Receive Date: 20130228
  Receipt Date: 20130228
  Transmission Date: 20140127
  Serious: No
  Sender: FDA-Public Use
  Company Number: US-GLAXOSMITHKLINE-A0998826A

PATIENT
  Age: 46 Year
  Sex: Female

DRUGS (5)
  1. LAMICTAL [Suspect]
     Indication: BIPOLAR DISORDER
     Dosage: 200MG TWICE PER DAY
     Route: 048
     Dates: start: 20120208
  2. NUVIGIL [Concomitant]
  3. ZOLOFT [Concomitant]
  4. TOPIRAMATE [Concomitant]
  5. ALPRAZOLAM [Concomitant]

REACTIONS (10)
  - Anxiety [Not Recovered/Not Resolved]
  - Depression [Unknown]
  - Confusional state [Unknown]
  - Hyperventilation [Unknown]
  - Tachyphrenia [Unknown]
  - Abnormal behaviour [Unknown]
  - Underdose [Unknown]
  - Drug ineffective [Unknown]
  - Product quality issue [Unknown]
  - Feeling abnormal [Unknown]
